FAERS Safety Report 13954314 (Version 2)
Quarter: 2017Q3

REPORT INFORMATION
  Report Type: Spontaneous
  Country: BR (occurrence: BR)
  Receive Date: 20170911
  Receipt Date: 20170920
  Transmission Date: 20171128
  Serious: Yes (Death, Hospitalization)
  Sender: FDA-Public Use
  Company Number: BR-INCYTE CORPORATION-2017IN007522

PATIENT

DRUGS (3)
  1. DIAZEPAM. [Concomitant]
     Active Substance: DIAZEPAM
     Indication: INSOMNIA
     Dosage: 1 DF, QD (ONE TABLET PER DAY)
     Route: 048
  2. LOSARTAN. [Concomitant]
     Active Substance: LOSARTAN
     Indication: HYPERTENSION
     Dosage: 1 DF, QD (ONE TABLET PER DAY)
     Route: 048
  3. JAKAVI [Suspect]
     Active Substance: RUXOLITINIB
     Indication: MYELOFIBROSIS
     Dosage: 2 DF, QD (2 TABLETS PER DAY)
     Route: 048
     Dates: start: 2016

REACTIONS (8)
  - Fall [Fatal]
  - Intracranial haematoma [Fatal]
  - Seizure [Unknown]
  - Skull fracture [Unknown]
  - Traumatic haemorrhage [Unknown]
  - Dizziness [Unknown]
  - Loss of consciousness [Unknown]
  - Head injury [Fatal]
